FAERS Safety Report 6246610-0 (Version None)
Quarter: 2009Q2

REPORT INFORMATION
  Report Type: 
  Country: None (occurrence: None)
  Receive Date: 20090626
  Receipt Date: 20090616
  Transmission Date: 20091009
  Serious: Yes (Life-Threatening, Hospitalization, Other)
  Sender: FDA-Public Use
  Company Number: DE-PFIZER INC-2008061340

PATIENT
  Age: 51 Year

DRUGS (5)
  1. INSPRA [Suspect]
     Indication: CARDIAC FAILURE
     Route: 048
     Dates: start: 20071001, end: 20080331
  2. XIPAMIDE [Concomitant]
     Route: 048
     Dates: start: 20071001, end: 20080405
  3. TORSEMIDE [Concomitant]
     Route: 048
     Dates: start: 20071001, end: 20080405
  4. BENALAPRIL [Concomitant]
     Route: 048
     Dates: start: 20071001, end: 20080405
  5. CARVEDILOL [Concomitant]
     Route: 048
     Dates: start: 20071001, end: 20080405

REACTIONS (5)
  - ACUTE PRERENAL FAILURE [None]
  - BLOOD CREATININE INCREASED [None]
  - DEHYDRATION [None]
  - GASTROENTERITIS [None]
  - URINARY TRACT INFECTION [None]
